FAERS Safety Report 16367797 (Version 1)
Quarter: 2019Q2

REPORT INFORMATION
  Report Type: Spontaneous
  Country: US (occurrence: US)
  Receive Date: 20190529
  Receipt Date: 20190529
  Transmission Date: 20190711
  Serious: No
  Sender: FDA-Public Use
  Company Number: US-BTG-201800343

PATIENT
  Age: 60 Year
  Sex: Male
  Weight: 93 kg

DRUGS (8)
  1. LEUCOVORIN. [Concomitant]
     Active Substance: LEUCOVORIN
     Indication: TOXICITY TO VARIOUS AGENTS
     Dosage: 219 MG (100 MG/M2), EVERY 3 HOURS
     Dates: start: 20181019, end: 20181031
  2. DEXAMETHASONE. [Concomitant]
     Active Substance: DEXAMETHASONE
     Indication: IMMUNE TOLERANCE INDUCTION
     Dosage: 20 MG, UNK
     Dates: start: 20181017, end: 20181017
  3. DEXAMETHASONE. [Concomitant]
     Active Substance: DEXAMETHASONE
     Indication: IMMUNE TOLERANCE INDUCTION
     Dosage: 20 MG, UNK
     Dates: start: 20181018, end: 20181018
  4. DEXAMETHASONE. [Concomitant]
     Active Substance: DEXAMETHASONE
     Indication: IMMUNE TOLERANCE INDUCTION
     Dosage: 2 MG, UNK
     Dates: start: 20181024
  5. VORAXAZE [Suspect]
     Active Substance: GLUCARPIDASE
     Indication: TOXICITY TO VARIOUS AGENTS
     Dosage: 5 VIALS, 4.3ML
     Dates: start: 20181015, end: 20181020
  6. DEXAMETHASONE. [Concomitant]
     Active Substance: DEXAMETHASONE
     Indication: IMMUNE TOLERANCE INDUCTION
     Dosage: 2 MG, UNK
     Dates: start: 20181023
  7. DEXTROSE 5% WITH SODIUM BICARBONATE [Concomitant]
     Indication: FLUID REPLACEMENT
     Dosage: UNK
     Dates: start: 20181018, end: 20181031
  8. METHOTREXATE. [Suspect]
     Active Substance: METHOTREXATE
     Indication: CENTRAL NERVOUS SYSTEM LYMPHOMA
     Dosage: UNK
     Dates: start: 20181015, end: 20181018

REACTIONS (4)
  - Underdose [Unknown]
  - Product quality issue [Unknown]
  - Therapy change [Unknown]
  - Renal impairment [Unknown]

NARRATIVE: CASE EVENT DATE: 20181020
